FAERS Safety Report 4815636-3 (Version None)
Quarter: 2005Q4

REPORT INFORMATION
  Report Type: 
  Country: None (occurrence: None)
  Receive Date: 20051027
  Receipt Date: 20051014
  Transmission Date: 20060501
  Serious: Yes (Other)
  Sender: FDA-Public Use
  Company Number: 2005123316

PATIENT
  Age: 38 Year
  Sex: Male
  Weight: 99 kg

DRUGS (5)
  1. ATORVASTATIN CALCIUM [Suspect]
     Indication: HYPERCHOLESTEROLAEMIA
     Dosage: 20 MG (20 MG, 1 IN 1 D); ORAL
     Route: 048
     Dates: start: 20050525, end: 20050727
  2. EZETROL (EZETIMIBE) [Suspect]
     Indication: HYPERCHOLESTEROLAEMIA
     Dosage: 10 MG (10 MG, 1 IN 1 D); ORAL
     Route: 048
     Dates: start: 20050525, end: 20050727
  3. KESTINE (EBASTINE) [Suspect]
     Indication: HYPERSENSITIVITY
     Dosage: 10 MG (1 D); ORAL
     Route: 048
     Dates: start: 20050525, end: 20050727
  4. ALL OTHER THERAPEUTIC PRODUCTS [Concomitant]
  5. OLMESARTAN  MEDOXOMIL [Concomitant]

REACTIONS (9)
  - ALANINE AMINOTRANSFERASE INCREASED [None]
  - ASPARTATE AMINOTRANSFERASE INCREASED [None]
  - ASTHENIA [None]
  - BLOOD BILIRUBIN INCREASED [None]
  - BLOOD TRIGLYCERIDES INCREASED [None]
  - GAMMA-GLUTAMYLTRANSFERASE INCREASED [None]
  - HEPATOCELLULAR DAMAGE [None]
  - IRON METABOLISM DISORDER [None]
  - SERUM FERRITIN INCREASED [None]
